FAERS Safety Report 25537772 (Version 2)
Quarter: 2025Q3

REPORT INFORMATION
  Report Type: Spontaneous
  Country: BR (occurrence: BR)
  Receive Date: 20250710
  Receipt Date: 20250806
  Transmission Date: 20251020
  Serious: Yes (Other)
  Sender: Phathom Pharmaceuticals
  Company Number: BR-PHATHOM PHARMACEUTICALS INC.-2025PHT01783

PATIENT
  Age: 57 Year
  Sex: Male
  Weight: 118.6 kg

DRUGS (7)
  1. VONOPRAZAN FUMARATE [Suspect]
     Active Substance: VONOPRAZAN FUMARATE
     Indication: Product used for unknown indication
     Dosage: 20 MG, 1X/DAY
  2. LISDEXAMFETAMINE DIMESYLATE [Suspect]
     Active Substance: LISDEXAMFETAMINE DIMESYLATE
     Indication: Product used for unknown indication
  3. ASPIRIN [Concomitant]
     Active Substance: ASPIRIN
  4. ROSUVASTATIN [Concomitant]
     Active Substance: ROSUVASTATIN
  5. OLMESARTAN [Concomitant]
     Active Substance: OLMESARTAN
  6. METOPROLOL [Concomitant]
     Active Substance: METOPROLOL
  7. MOTILIUM [Concomitant]
     Active Substance: DOMPERIDONE

REACTIONS (10)
  - Erosive oesophagitis [Unknown]
  - Barrett^s oesophagus [Unknown]
  - Coronary artery stenosis [Unknown]
  - Gastrooesophageal reflux disease [Unknown]
  - Decreased appetite [Unknown]
  - Cough [Unknown]
  - Weight decreased [Unknown]
  - Hyperphagia [Unknown]
  - Hepatic steatosis [Unknown]
  - Constipation [Unknown]
